FAERS Safety Report 6619386-2 (Version None)
Quarter: 2010Q1

REPORT INFORMATION
  Report Type: 
  Country: None (occurrence: None)
  Receive Date: 20100309
  Receipt Date: 20100226
  Transmission Date: 20100710
  Serious: Yes (Hospitalization, Disabling)
  Sender: FDA-Public Use
  Company Number: US-BIOGENIDEC-2009BI028171

PATIENT
  Age: 38 Year
  Sex: Female
  Weight: 66 kg

DRUGS (18)
  1. TYSABRI [Suspect]
     Indication: MULTIPLE SCLEROSIS
     Route: 042
     Dates: start: 20081007
  2. PERCOCET [Concomitant]
     Route: 048
  3. ALPRAZOLAM [Concomitant]
     Route: 048
  4. CELEXA [Concomitant]
     Route: 048
  5. TOPAMAX [Concomitant]
     Route: 048
  6. BACLOFEN [Concomitant]
     Route: 048
  7. OMEPRAZOLE [Concomitant]
     Route: 048
  8. MORPHINE [Concomitant]
  9. METHADONE HYDROCHLORIDE [Concomitant]
  10. NEURONTIN [Concomitant]
  11. NORCO [Concomitant]
  12. [BETAMETHASONE AND] CALCIPOTRIENE [Concomitant]
     Indication: PSORIASIS
  13. BETAMETHASONE [AND CALCIPOTRIENE] [Concomitant]
  14. VYTORIN [Concomitant]
  15. LAMICTAL CD [Concomitant]
  16. ANTIVERT [Concomitant]
  17. ZYPREXA [Concomitant]
  18. SENNA [Concomitant]

REACTIONS (12)
  - CONDITION AGGRAVATED [None]
  - FALL [None]
  - HAEMATOCRIT DECREASED [None]
  - HAEMOGLOBIN DECREASED [None]
  - HYPOKALAEMIA [None]
  - INCOHERENT [None]
  - MENTAL STATUS CHANGES [None]
  - MULTIPLE SCLEROSIS [None]
  - PAIN IN EXTREMITY [None]
  - PLATELET COUNT ABNORMAL [None]
  - PNEUMONIA [None]
  - THYROID NEOPLASM [None]
